FAERS Safety Report 9281072 (Version 1)
Quarter: 2013Q2

REPORT INFORMATION
  Report Type: Report from Study
  Country: US (occurrence: US)
  Receive Date: 20130509
  Receipt Date: 20130509
  Transmission Date: 20140414
  Serious: Yes (Hospitalization)
  Sender: FDA-Public Use
  Company Number: US-SANOFI-AVENTIS-2013SA046683

PATIENT
  Age: 69 Year
  Sex: Female
  Weight: 75.1 kg

DRUGS (13)
  1. DOCETAXEL [Suspect]
     Indication: TRANSITIONAL CELL CARCINOMA
     Route: 041
     Dates: start: 20130411, end: 20130411
  2. INVESTIGATIONAL DRUG [Suspect]
     Indication: TRANSITIONAL CELL CARCINOMA
     Dates: start: 20130411, end: 20130411
  3. INVESTIGATIONAL DRUG [Suspect]
     Indication: TRANSITIONAL CELL CARCINOMA
     Dates: start: 20130418, end: 20130418
  4. ASPIRIN [Concomitant]
     Dates: start: 20130301
  5. CALCIUM CARBONATE [Concomitant]
     Dates: start: 20130301
  6. CHOLECALCIFEROL [Concomitant]
     Dates: start: 20130301
  7. HYDROCHLOROTHIAZIDE [Concomitant]
     Dates: start: 20130301
  8. METOPROLOL [Concomitant]
     Dates: start: 20120425
  9. SIMVASTATIN [Concomitant]
     Dates: start: 20120906
  10. TRAVOPROST [Concomitant]
     Dates: start: 20120301
  11. DEXAMETHASONE [Concomitant]
     Dates: start: 20130410
  12. RANITIDINE [Concomitant]
     Dates: start: 20130412
  13. DEXAMETHASONE [Concomitant]
     Dates: start: 20130419

REACTIONS (2)
  - Hyponatraemia [Recovered/Resolved]
  - Diarrhoea [Recovered/Resolved]
